FAERS Safety Report 5357664-8 (Version None)
Quarter: 2007Q2

REPORT INFORMATION
  Report Type: 
  Country: None (occurrence: None)
  Receive Date: 20070614
  Receipt Date: 20070601
  Transmission Date: 20071010
  Serious: Yes (Hospitalization)
  Sender: FDA-Public Use
  Company Number: FI-PFIZER INC-2007045095

PATIENT
  Sex: Female
  Weight: 50 kg

DRUGS (8)
  1. ADRIAMYCIN PFS [Suspect]
     Indication: BURKITT'S LYMPHOMA
     Dates: start: 20060601, end: 20060911
  2. CYCLOPHOSPHAMIDE [Suspect]
     Indication: BURKITT'S LYMPHOMA
     Route: 048
     Dates: start: 20060601, end: 20060911
  3. CYTARABINE [Suspect]
     Indication: BURKITT'S LYMPHOMA
     Dates: start: 20060601, end: 20061004
  4. ONCOVIN [Suspect]
     Indication: BURKITT'S LYMPHOMA
     Dates: start: 20060601, end: 20060911
  5. MABTHERA [Suspect]
     Indication: BURKITT'S LYMPHOMA
     Dates: start: 20060601, end: 20061004
  6. METHOTREXATE [Suspect]
     Indication: BURKITT'S LYMPHOMA
     Dates: start: 20060601, end: 20061004
  7. PREDNISONE TAB [Suspect]
     Indication: BURKITT'S LYMPHOMA
     Dates: start: 20060601, end: 20060911
  8. TREXAN [Suspect]
     Indication: BURKITT'S LYMPHOMA
     Dates: start: 20060601, end: 20061004

REACTIONS (21)
  - AFFECTIVE DISORDER [None]
  - ANXIETY [None]
  - BALANCE DISORDER [None]
  - BLOOD ALBUMIN DECREASED [None]
  - C-REACTIVE PROTEIN INCREASED [None]
  - CD4 LYMPHOCYTES DECREASED [None]
  - COMMUNICATION DISORDER [None]
  - DECUBITUS ULCER [None]
  - DIPLOPIA [None]
  - FATIGUE [None]
  - HAEMOGLOBIN DECREASED [None]
  - IMMUNOGLOBULINS DECREASED [None]
  - MEMORY IMPAIRMENT [None]
  - NASOPHARYNGITIS [None]
  - NAUSEA [None]
  - OSSICLE DISORDER [None]
  - PITTING OEDEMA [None]
  - PROGRESSIVE MULTIFOCAL LEUKOENCEPHALOPATHY [None]
  - PYREXIA [None]
  - VERTIGO [None]
  - WEIGHT DECREASED [None]
